FAERS Safety Report 22101214 (Version 1)
Quarter: 2023Q1

REPORT INFORMATION
  Report Type: Spontaneous
  Country: IT (occurrence: None)
  Receive Date: 20230316
  Receipt Date: 20230316
  Transmission Date: 20230418
  Serious: Yes (Other)
  Sender: FDA-Public Use
  Company Number: IT-ROCHE-3283530

PATIENT
  Age: 55 Year
  Sex: Female

DRUGS (2)
  1. KADCYLA [Suspect]
     Active Substance: ADO-TRASTUZUMAB EMTANSINE
     Indication: Breast cancer metastatic
     Dosage: VOLUME CODE 5 ML
     Route: 065
  2. KADCYLA [Suspect]
     Active Substance: ADO-TRASTUZUMAB EMTANSINE
     Route: 065
     Dates: start: 20230119

REACTIONS (4)
  - Injection site extravasation [Recovered/Resolved]
  - Injection site swelling [Recovered/Resolved]
  - Erythema [Recovering/Resolving]
  - Pain of skin [Recovered/Resolved]

NARRATIVE: CASE EVENT DATE: 20230119
